FAERS Safety Report 23378459 (Version 1)
Quarter: 2024Q1

REPORT INFORMATION
  Report Type: Spontaneous
  Country: US (occurrence: None)
  Receive Date: 20240106
  Receipt Date: 20240106
  Transmission Date: 20240410
  Serious: Yes (Other)
  Sender: FDA-Public Use
  Company Number: None

PATIENT
  Age: 68 Year
  Sex: Female
  Weight: 57.15 kg

DRUGS (11)
  1. PAXLOVID [Suspect]
     Active Substance: NIRMATRELVIR\RITONAVIR
     Indication: SARS-CoV-2 test positive
     Dosage: OTHER QUANTITY : 3 TABLET(S);?FREQUENCY : TWICE A DAY;?
     Route: 048
     Dates: start: 20240105, end: 20240106
  2. Dorzolamide/Timolol eye drop [Concomitant]
  3. CLARITIN [Concomitant]
     Active Substance: LORATADINE
  4. NALTREXONE [Concomitant]
     Active Substance: NALTREXONE
  5. MINOXIDIL [Concomitant]
     Active Substance: MINOXIDIL
  6. GUAIFENESIN [Concomitant]
     Active Substance: GUAIFENESIN
  7. VITAMIN C [Concomitant]
     Active Substance: ASCORBIC ACID
  8. VITAMIN B COMPLEX [Concomitant]
     Active Substance: CYANOCOBALAMIN\DEXPANTHENOL\NIACINAMIDE\PYRIDOXINE HYDROCHLORIDE\RIBOFLAVIN 5^-PHOSPHATE SODIUM\THIA
  9. DIETARY SUPPLEMENT\UBIDECARENONE [Concomitant]
     Active Substance: DIETARY SUPPLEMENT\UBIDECARENONE
  10. KRILL OIL [Concomitant]
     Active Substance: DIETARY SUPPLEMENT\KRILL OIL
  11. zinc magnesium oxide [Concomitant]

REACTIONS (5)
  - Abdominal pain upper [None]
  - Abdominal distension [None]
  - Flatulence [None]
  - Vomiting [None]
  - Dysstasia [None]

NARRATIVE: CASE EVENT DATE: 20240106
